FAERS Safety Report 4531449-4 (Version None)
Quarter: 2004Q4

REPORT INFORMATION
  Report Type: 
  Country: None (occurrence: None)
  Receive Date: 20041216
  Receipt Date: 20041202
  Transmission Date: 20050328
  Serious: Yes (Hospitalization)
  Sender: FDA-Public Use
  Company Number: MEDI-0002525

PATIENT
  Age: 72 Year
  Sex: Female
  Weight: 47.1741 kg

DRUGS (21)
  1. ETHYOL [Suspect]
     Indication: RADIOTHERAPY
     Dosage: 500 MG, 5 IN 1 WK, SUBCUTANEOUS
     Route: 058
     Dates: start: 20030520, end: 20030611
  2. RADIATION THERAPY [Concomitant]
  3. NORVASC [Concomitant]
  4. MAALOX (MAGNESIUM HYDROXIDE, ALUMINIUM HYDROXIDE GEL) [Concomitant]
  5. LORTAB [Concomitant]
  6. PROTONIX [Concomitant]
  7. MEDROL [Concomitant]
  8. ROCEPHIN [Concomitant]
  9. FRAGMIN [Concomitant]
  10. AMBIEN [Concomitant]
  11. LOTREL [Concomitant]
  12. K-DUR 10 [Concomitant]
  13. NICODERM [Concomitant]
  14. SOLU-MEDROL [Concomitant]
  15. WELLBUTRIN [Concomitant]
  16. LOTENSIN [Concomitant]
  17. LEXAPRO [Concomitant]
  18. ACETYLSALICYLIC ACID SRT [Concomitant]
  19. THEO-DUR [Concomitant]
  20. XANAX [Concomitant]
  21. LEVAQUIN [Concomitant]

REACTIONS (5)
  - CHRONIC OBSTRUCTIVE AIRWAYS DISEASE EXACERBATED [None]
  - DRUG TOXICITY [None]
  - NAUSEA [None]
  - PYREXIA [None]
  - VOMITING [None]
